FAERS Safety Report 13443147 (Version 2)
Quarter: 2017Q2

REPORT INFORMATION
  Report Type: Spontaneous
  Country: US (occurrence: US)
  Receive Date: 20170414
  Receipt Date: 20170511
  Transmission Date: 20170830
  Serious: Yes (Other)
  Sender: FDA-Public Use
  Company Number: US-TORRENT-00002664

PATIENT
  Age: 74 Year
  Sex: Female

DRUGS (16)
  1. OLANZAPINE. [Suspect]
     Active Substance: OLANZAPINE
  2. AMITRIPTYLINE [Suspect]
     Active Substance: AMITRIPTYLINE
  3. CLONAZEPAM. [Concomitant]
     Active Substance: CLONAZEPAM
  4. BUPROPION HYDROCHLORIDE. [Suspect]
     Active Substance: BUPROPION HYDROCHLORIDE
  5. ALPRAZOLAM. [Suspect]
     Active Substance: ALPRAZOLAM
  6. WARFARIN [Concomitant]
     Active Substance: WARFARIN
  7. PROPRANOLOL [Concomitant]
     Active Substance: PROPRANOLOL HYDROCHLORIDE
  8. ESCITALOPRAM [Suspect]
     Active Substance: ESCITALOPRAM OXALATE
  9. LORAZEPAM. [Suspect]
     Active Substance: LORAZEPAM
  10. VALPROIC ACID. [Concomitant]
     Active Substance: VALPROIC ACID
  11. ILOPERIDONE. [Suspect]
     Active Substance: ILOPERIDONE
  12. QUETIAPINE. [Concomitant]
     Active Substance: QUETIAPINE
  13. HALOPERIDOL. [Concomitant]
     Active Substance: HALOPERIDOL
  14. METHIMAZOLE. [Concomitant]
     Active Substance: METHIMAZOLE
  15. TRAZODONE [Concomitant]
     Active Substance: TRAZODONE HYDROCHLORIDE
  16. MIRTAZAPINE. [Suspect]
     Active Substance: MIRTAZAPINE

REACTIONS (2)
  - Drug ineffective [Unknown]
  - Electrocardiogram QT prolonged [Recovered/Resolved]
